FAERS Safety Report 5358493-1 (Version None)
Quarter: 2007Q2

REPORT INFORMATION
  Report Type: 
  Country: None (occurrence: None)
  Receive Date: 20070614
  Receipt Date: 20070614
  Transmission Date: 20071010
  Serious: Yes (Hospitalization)
  Sender: FDA-Public Use
  Company Number: None

PATIENT
  Age: 53 Year
  Sex: Male

DRUGS (1)
  1. SCOPOLAMINE [Suspect]
     Dosage: 1.5 PREOP TOP
     Route: 061

REACTIONS (2)
  - CONFUSIONAL STATE [None]
  - DISORIENTATION [None]
